FAERS Safety Report 15336202 (Version 1)
Quarter: 2018Q3

REPORT INFORMATION
  Report Type: Spontaneous
  Country: US (occurrence: US)
  Receive Date: 20180830
  Receipt Date: 20180830
  Transmission Date: 20181010
  Serious: Yes (Other)
  Sender: FDA-Public Use
  Company Number: US-009507513-1808USA010494

PATIENT
  Age: 66 Year
  Sex: Female

DRUGS (2)
  1. DULERA [Suspect]
     Active Substance: FORMOTEROL FUMARATE DIHYDRATE\MOMETASONE FUROATE
     Dosage: UNK
  2. ALBUTEROL. [Concomitant]
     Active Substance: ALBUTEROL

REACTIONS (3)
  - Wheezing [Unknown]
  - Dyspnoea [Unknown]
  - Product quality issue [Unknown]

NARRATIVE: CASE EVENT DATE: 20180802
